FAERS Safety Report 4967888-7 (Version None)
Quarter: 2006Q2

REPORT INFORMATION
  Report Type: 
  Country: None (occurrence: None)
  Receive Date: 20060407
  Receipt Date: 20060407
  Transmission Date: 20061013
  Serious: No
  Sender: FDA-Public Use
  Company Number: None

PATIENT
  Sex: Female

DRUGS (1)
  1. ULTRAM [Suspect]
     Dosage: Q 8 HRS PRN

REACTIONS (1)
  - DRUG HYPERSENSITIVITY [None]
